FAERS Safety Report 5084365-6 (Version None)
Quarter: 2006Q3

REPORT INFORMATION
  Report Type: 
  Country: None (occurrence: None)
  Receive Date: 20060816
  Receipt Date: 20060803
  Transmission Date: 20061208
  Serious: Yes (Hospitalization)
  Sender: FDA-Public Use
  Company Number: E3810-00028-CLI-US

PATIENT
  Age: 31 Year
  Sex: Male
  Weight: 102 kg

DRUGS (9)
  1. ACIPHEX [Suspect]
     Indication: DYSPEPSIA
     Dosage: 1 TAB, ORAL
     Route: 048
     Dates: start: 20060424, end: 20060616
  2. TUMS (CALCIUM CARBONATE) [Concomitant]
  3. UNKNOWN ANTIBIOTIC [Concomitant]
  4. ALBUTEROL [Concomitant]
  5. BRONCHADILATOR (BRONCHILATOR) [Concomitant]
  6. ACID REDUCER [Concomitant]
  7. VIODIN (POVIDONE-IODINE) [Concomitant]
  8. ANTACID (TITRALAC) [Concomitant]
  9. BENADRYL [Concomitant]

REACTIONS (3)
  - EROSIVE OESOPHAGITIS [None]
  - PNEUMONIA [None]
  - PRURITUS [None]
